FAERS Safety Report 5003155-3 (Version None)
Quarter: 2006Q2

REPORT INFORMATION
  Report Type: 
  Country: None (occurrence: None)
  Receive Date: 20060512
  Receipt Date: 20060502
  Transmission Date: 20061013
  Serious: Yes (Death)
  Sender: FDA-Public Use
  Company Number: USA0509108660

PATIENT
  Age: 48 Year
  Sex: Female
  Weight: 68 kg

DRUGS (7)
  1. CYMBALTA [Suspect]
     Indication: MAJOR DEPRESSION
     Dosage: 80 MG, DAILY (1/D)
  2. ENDOCET [Concomitant]
  3. MORPHINE [Concomitant]
  4. KLONOPIN [Concomitant]
  5. ESZOPICLONE [Concomitant]
  6. AMITRIPTYLINE HCL [Concomitant]
  7. FENTANYL [Concomitant]

REACTIONS (1)
  - HYPERTENSIVE CARDIOMYOPATHY [None]
